FAERS Safety Report 13563578 (Version 3)
Quarter: 2017Q2

REPORT INFORMATION
  Report Type: Spontaneous
  Country: JP (occurrence: JP)
  Receive Date: 20170519
  Receipt Date: 20170612
  Transmission Date: 20170830
  Serious: Yes (Other)
  Sender: FDA-Public Use
  Company Number: JP-PFIZER INC-2017215229

PATIENT
  Age: 85 Year
  Sex: Male

DRUGS (4)
  1. LOSARTAN POTASSIUM. [Concomitant]
     Active Substance: LOSARTAN POTASSIUM
     Dosage: UNK
     Route: 048
  2. AMLODIPINE BESILATE [Suspect]
     Active Substance: AMLODIPINE BESYLATE
     Dosage: UNK
     Route: 048
  3. BAYASPIRIN [Concomitant]
     Active Substance: ASPIRIN
     Dosage: UNK
     Route: 048
  4. CARVEDILOL. [Concomitant]
     Active Substance: CARVEDILOL
     Dosage: UNK
     Route: 048

REACTIONS (11)
  - Feeling cold [Unknown]
  - Heart rate decreased [Unknown]
  - Poor peripheral circulation [Unknown]
  - Poor quality sleep [Unknown]
  - Cardiogenic shock [Unknown]
  - Malaise [Unknown]
  - Jugular vein distension [Unknown]
  - Abnormal precordial movement [Unknown]
  - Restlessness [Unknown]
  - Crepitations [Unknown]
  - Blood pressure decreased [Unknown]
